FAERS Safety Report 5475879-5 (Version None)
Quarter: 2007Q4

REPORT INFORMATION
  Report Type: 
  Country: None (occurrence: None)
  Receive Date: 20071003
  Receipt Date: 20071001
  Transmission Date: 20080405
  Serious: Yes (Hospitalization)
  Sender: FDA-Public Use
  Company Number: FR-BRISTOL-MYERS SQUIBB COMPANY-13915749

PATIENT
  Age: 2 Year
  Sex: Female

DRUGS (4)
  1. TAXOL [Suspect]
     Indication: CONGENITAL TERATOMA
     Route: 042
     Dates: start: 20070621
  2. GEMCITABINE HCL [Concomitant]
  3. OXALIPLATIN [Concomitant]
  4. EPIRUBICIN [Concomitant]

REACTIONS (3)
  - APLASIA [None]
  - MOUTH ULCERATION [None]
  - PYREXIA [None]
